FAERS Safety Report 7268184-8 (Version None)
Quarter: 2011Q1

REPORT INFORMATION
  Report Type: 
  Country: None (occurrence: None)
  Receive Date: 20110201
  Receipt Date: 20110120
  Transmission Date: 20110831
  Serious: Yes (Other)
  Sender: FDA-Public Use
  Company Number: PHHY2011US05481

PATIENT

DRUGS (2)
  1. GLEEVEC [Suspect]
  2. CHEMOTHERAPEUTICS NOS [Concomitant]

REACTIONS (1)
  - PARAPLEGIA [None]
